FAERS Safety Report 24839135 (Version 4)
Quarter: 2025Q1

REPORT INFORMATION
  Report Type: Spontaneous
  Country: CA (occurrence: CA)
  Receive Date: 20250114
  Receipt Date: 20250303
  Transmission Date: 20250409
  Serious: Yes (Hospitalization, Other)
  Sender: CELLTRION
  Company Number: CA-PFIZER INC-202500003369

PATIENT

DRUGS (3)
  1. INFLECTRA [Suspect]
     Active Substance: INFLIXIMAB-DYYB
     Indication: Hidradenitis
     Route: 042
     Dates: start: 20241106
  2. INFLECTRA [Suspect]
     Active Substance: INFLIXIMAB-DYYB
     Indication: Pyoderma gangrenosum
     Route: 042
     Dates: start: 20250103
  3. INFLECTRA [Suspect]
     Active Substance: INFLIXIMAB-DYYB
     Route: 042
     Dates: start: 20250103

REACTIONS (4)
  - Cardiac pacemaker insertion [Recovered/Resolved]
  - Confusional state [Unknown]
  - Pyrexia [Unknown]
  - Wound infection [Unknown]

NARRATIVE: CASE EVENT DATE: 20241231
